FAERS Safety Report 5518029-9 (Version None)
Quarter: 2007Q4

REPORT INFORMATION
  Report Type: 
  Country: None (occurrence: None)
  Receive Date: 20071115
  Receipt Date: 20071102
  Transmission Date: 20080405
  Serious: Yes (Other)
  Sender: FDA-Public Use
  Company Number: GB-NOVOPROD-268996

PATIENT
  Sex: Female
  Weight: 56.6 kg

DRUGS (7)
  1. INSULIN DETEMIR FLEXPEN [Suspect]
     Indication: INSULIN-REQUIRING TYPE II DIABETES MELLITUS
     Dosage: 12 IU, QD
     Route: 058
     Dates: start: 20070201
  2. AERX SOLUTION 2.6 MG/STRIP [Suspect]
     Indication: INSULIN-REQUIRING TYPE II DIABETES MELLITUS
     Dosage: 56 IU, QD
     Route: 055
     Dates: start: 20070201, end: 20071101
  3. ASPIRINE                           /00002701/ [Concomitant]
     Dosage: UNK MG, UNK
     Route: 048
     Dates: start: 20000212
  4. GTN-S [Concomitant]
     Route: 060
     Dates: start: 20010212
  5. FLUVASTATIN [Concomitant]
     Dosage: UNK MG, UNK
     Route: 048
     Dates: start: 20030225
  6. SERTRALINE [Concomitant]
     Route: 048
     Dates: start: 20061002
  7. ESTRACOMBI                         /00045401/ [Concomitant]
     Dates: start: 20050419

REACTIONS (1)
  - PULMONARY FUNCTION TEST DECREASED [None]
